FAERS Safety Report 24773818 (Version 2)
Quarter: 2024Q4

REPORT INFORMATION
  Report Type: Report from Study
  Country: IN (occurrence: IN)
  Receive Date: 20241225
  Receipt Date: 20241228
  Transmission Date: 20250114
  Serious: Yes (Hospitalization, Other)
  Sender: NOVARTIS
  Company Number: IN-002147023-NVSC2024IN243318

PATIENT
  Sex: Female

DRUGS (1)
  1. ASCIMINIB [Suspect]
     Active Substance: ASCIMINIB
     Indication: Acute myeloid leukaemia
     Dosage: 40 MG, BID (TWICE A DAY)
     Route: 048

REACTIONS (7)
  - Diarrhoea [Unknown]
  - Philadelphia chromosome positive [Unknown]
  - Hepatitis B virus test positive [Unknown]
  - Product use in unapproved indication [Unknown]
  - Pyrexia [Unknown]
  - Asthenia [Unknown]
  - Vertigo [Unknown]
